FAERS Safety Report 11147863 (Version 5)
Quarter: 2015Q2

REPORT INFORMATION
  Report Type: Spontaneous
  Country: US (occurrence: US)
  Receive Date: 20150529
  Receipt Date: 20150618
  Transmission Date: 20150821
  Serious: Yes (Other)
  Sender: FDA-Public Use
  Company Number: US-ASTRAZENECA-2014SE71399

PATIENT
  Age: 20055 Day
  Sex: Female
  Weight: 101.3 kg

DRUGS (18)
  1. LISINOPRIL. [Concomitant]
     Active Substance: LISINOPRIL
  2. BYETTA [Suspect]
     Active Substance: EXENATIDE
     Dosage: 10 UNIT TWICE A DAY BEFORE MEALS
     Route: 058
     Dates: start: 20091123
  3. GLUCOPHAGE [Concomitant]
     Active Substance: METFORMIN HYDROCHLORIDE
  4. BYETTA [Suspect]
     Active Substance: EXENATIDE
     Route: 065
     Dates: start: 20100602
  5. BYETTA [Suspect]
     Active Substance: EXENATIDE
     Route: 065
     Dates: start: 20150513
  6. ZOLOFT [Concomitant]
     Active Substance: SERTRALINE HYDROCHLORIDE
     Route: 065
  7. RAMIPRIL. [Concomitant]
     Active Substance: RAMIPRIL
     Dates: start: 20100714
  8. BYETTA [Suspect]
     Active Substance: EXENATIDE
     Dosage: UNK
     Route: 065
     Dates: start: 20100602, end: 20140327
  9. LEVOTHYROXINE [Concomitant]
     Active Substance: LEVOTHYROXINE
     Dates: start: 20100504
  10. HYDROCHLOROTHIAZIDE. [Concomitant]
     Active Substance: HYDROCHLOROTHIAZIDE
     Dates: start: 20100617
  11. MEDROXYPROGESTERONE [Concomitant]
     Active Substance: MEDROXYPROGESTERONE
     Dates: start: 20100430
  12. CALCIUM CARBONATE, VITAMIN D NOS [Concomitant]
     Dosage: 1 PILL BY MAUTH EVRY EVENING
     Route: 048
     Dates: start: 20091123
  13. BYETTA [Suspect]
     Active Substance: EXENATIDE
     Route: 065
     Dates: start: 20061103
  14. SINGULAIR [Concomitant]
     Active Substance: MONTELUKAST SODIUM
     Dates: start: 20100629
  15. BYETTA [Suspect]
     Active Substance: EXENATIDE
     Route: 065
     Dates: start: 20091216
  16. ASPIRIN. [Concomitant]
     Active Substance: ASPIRIN
  17. GARLIC. [Concomitant]
     Active Substance: GARLIC
  18. ZOTRAN [Concomitant]
     Active Substance: ALPRAZOLAM

REACTIONS (4)
  - Hypothyroidism [Unknown]
  - Goitre [Unknown]
  - Thyroid neoplasm [Unknown]
  - Papillary thyroid cancer [Unknown]

NARRATIVE: CASE EVENT DATE: 20091216
